FAERS Safety Report 25788713 (Version 1)
Quarter: 2025Q3

REPORT INFORMATION
  Report Type: Report from Study
  Country: US (occurrence: US)
  Receive Date: 20250910
  Receipt Date: 20250910
  Transmission Date: 20251021
  Serious: No
  Sender: BIOGEN
  Company Number: US-BIOGEN-2025BI01323526

PATIENT
  Sex: Female

DRUGS (1)
  1. ZURZUVAE [Suspect]
     Active Substance: ZURANOLONE
     Indication: Perinatal depression
     Dosage: 50 MG ONCE DAILY
     Route: 050

REACTIONS (7)
  - Dysarthria [Unknown]
  - Amnesia [Unknown]
  - Depression [Unknown]
  - Morbid thoughts [Unknown]
  - Anger [Unknown]
  - Fatigue [Unknown]
  - Hypersomnia [Unknown]
